FAERS Safety Report 10612203 (Version 3)
Quarter: 2016Q1

REPORT INFORMATION
  Report Type: Report from Study
  Country: NZ (occurrence: NZ)
  Receive Date: 20141127
  Receipt Date: 20160122
  Transmission Date: 20160525
  Serious: Yes (Other)
  Sender: FDA-Public Use
  Company Number: NZ-ABBVIE-14K-118-1312338-00

PATIENT
  Sex: Female

DRUGS (1)
  1. HUMIRA [Suspect]
     Active Substance: ADALIMUMAB
     Indication: CROHN^S DISEASE
     Route: 058
     Dates: start: 20140909, end: 20141007

REACTIONS (16)
  - Hypokalaemia [Unknown]
  - Small intestinal stenosis [Unknown]
  - Ear pain [Unknown]
  - Migraine [Unknown]
  - Dysarthria [Recovered/Resolved]
  - Nervous system disorder [Recovered/Resolved]
  - Vomiting [Unknown]
  - Diarrhoea [Unknown]
  - Monoplegia [Recovered/Resolved]
  - Gastrointestinal disorder [Unknown]
  - Vomiting [Unknown]
  - Neurological symptom [Unknown]
  - Pain in extremity [Unknown]
  - Drug hypersensitivity [Unknown]
  - Malnutrition [Unknown]
  - Magnesium deficiency [Unknown]

NARRATIVE: CASE EVENT DATE: 2014
